FAERS Safety Report 7328007-5 (Version None)
Quarter: 2011Q1

REPORT INFORMATION
  Report Type: 
  Country: None (occurrence: None)
  Receive Date: 20110303
  Receipt Date: 20110222
  Transmission Date: 20110831
  Serious: Yes (Hospitalization)
  Sender: FDA-Public Use
  Company Number: AU-JNJFOC-20110207269

PATIENT
  Age: 23 Year
  Sex: Female

DRUGS (3)
  1. REMICADE [Suspect]
     Indication: JUVENILE ARTHRITIS
     Route: 042
  2. REMICADE [Suspect]
     Indication: ANKYLOSING SPONDYLITIS
     Route: 042
  3. REMICADE [Suspect]
     Indication: UVEITIS
     Route: 042

REACTIONS (9)
  - URINARY TRACT INFECTION [None]
  - DRUG EXPOSURE DURING PREGNANCY [None]
  - ARTHRALGIA [None]
  - DRUG INEFFECTIVE [None]
  - HEAT STROKE [None]
  - PREGNANCY [None]
  - EYE PAIN [None]
  - TREATMENT NONCOMPLIANCE [None]
  - VISION BLURRED [None]
